FAERS Safety Report 11220643 (Version 1)
Quarter: 2015Q2

REPORT INFORMATION
  Report Type: Spontaneous
  Country: FR (occurrence: FR)
  Receive Date: 20150626
  Receipt Date: 20150626
  Transmission Date: 20150821
  Serious: Yes (Death, Hospitalization)
  Sender: FDA-Public Use
  Company Number: FR-ROCHE-1598641

PATIENT
  Age: 46 Year
  Sex: Male

DRUGS (1)
  1. XELODA [Suspect]
     Active Substance: CAPECITABINE
     Indication: LUNG CANCER METASTATIC
     Route: 065
     Dates: start: 201405, end: 201409

REACTIONS (3)
  - Hypertension [Not Recovered/Not Resolved]
  - Cerebral haemorrhage [Fatal]
  - Off label use [Unknown]
